FAERS Safety Report 7530809-7 (Version None)
Quarter: 2011Q2

REPORT INFORMATION
  Report Type: 
  Country: None (occurrence: None)
  Receive Date: 20110607
  Receipt Date: 20110602
  Transmission Date: 20111010
  Serious: Yes (Hospitalization, Other)
  Sender: FDA-Public Use
  Company Number: US-RB-027413-11

PATIENT
  Age: 37 Year
  Sex: Female

DRUGS (1)
  1. SUBOXONE [Suspect]
     Indication: PRODUCT USED FOR UNKNOWN INDICATION
     Dosage: SUBLINGUAL FILM / DOSING INFORMATION UNKNWON
     Route: 065

REACTIONS (10)
  - NAUSEA [None]
  - PAIN [None]
  - ARTHRALGIA [None]
  - GALLBLADDER DISORDER [None]
  - OFF LABEL USE [None]
  - MIGRAINE [None]
  - HEADACHE [None]
  - DRUG WITHDRAWAL SYNDROME [None]
  - ABDOMINAL DISCOMFORT [None]
  - ADHESION [None]
